FAERS Safety Report 24754414 (Version 1)
Quarter: 2024Q4

REPORT INFORMATION
  Report Type: Spontaneous
  Country: US (occurrence: None)
  Receive Date: 20241218
  Receipt Date: 20241218
  Transmission Date: 20250115
  Serious: Yes (Other)
  Sender: Public
  Company Number: None

PATIENT
  Age: 40 Year
  Sex: Male
  Weight: 80.1 kg

DRUGS (1)
  1. BIKTARVY [Suspect]
     Active Substance: BICTEGRAVIR SODIUM\EMTRICITABINE\TENOFOVIR ALAFENAMIDE FUMARATE
     Indication: HIV infection
     Dosage: DAILY ORAL
     Route: 048
     Dates: start: 20220721

REACTIONS (4)
  - Blood lactic acid [None]
  - Fatigue [None]
  - Peripheral coldness [None]
  - Myalgia [None]

NARRATIVE: CASE EVENT DATE: 20241215
